FAERS Safety Report 11099687 (Version 1)
Quarter: 2015Q2

REPORT INFORMATION
  Report Type: Spontaneous
  Country: US (occurrence: US)
  Receive Date: 20150508
  Receipt Date: 20150508
  Transmission Date: 20150821
  Serious: No
  Sender: FDA-Public Use
  Company Number: US-009507513-1504USA005190

PATIENT
  Age: 26 Year
  Sex: Female
  Weight: 90.7 kg

DRUGS (1)
  1. NEXPLANON [Suspect]
     Active Substance: ETONOGESTREL
     Indication: CONTRACEPTION
     Dosage: LEFT ARM FOR 3 YEARS
     Route: 059
     Dates: start: 20140626

REACTIONS (2)
  - Menstruation delayed [Unknown]
  - Breast pain [Unknown]

NARRATIVE: CASE EVENT DATE: 201502
